FAERS Safety Report 5614083-4 (Version None)
Quarter: 2008Q1

REPORT INFORMATION
  Report Type: 
  Country: None (occurrence: None)
  Receive Date: 20080130
  Receipt Date: 20071225
  Transmission Date: 20080703
  Serious: Yes (Other)
  Sender: FDA-Public Use
  Company Number: 2007SP025426

PATIENT
  Age: 65 Year
  Sex: Female

DRUGS (4)
  1. CLARITIN [Suspect]
     Indication: DRUG USE FOR UNKNOWN INDICATION
     Dosage: 10 MG; PO
     Route: 048
     Dates: start: 20071221, end: 20071223
  2. MUCODYNE [Concomitant]
  3. VASOLAN [Concomitant]
  4. LIVALO [Concomitant]

REACTIONS (3)
  - ABASIA [None]
  - ASTHENIA [None]
  - BACK DISORDER [None]
